FAERS Safety Report 16437788 (Version 1)
Quarter: 2019Q2

REPORT INFORMATION
  Report Type: Spontaneous
  Country: IT (occurrence: IT)
  Receive Date: 20190616
  Receipt Date: 20190616
  Transmission Date: 20190711
  Serious: Yes (Other)
  Sender: FDA-Public Use
  Company Number: PHHY2019IT135837

PATIENT
  Age: 67 Year
  Sex: Male

DRUGS (2)
  1. DOCETAXEL. [Suspect]
     Active Substance: DOCETAXEL
     Indication: LUNG ADENOCARCINOMA
     Dosage: 33 MG, QD
     Route: 065
     Dates: start: 20180705, end: 20180923
  2. VARGATEF [Suspect]
     Active Substance: NINTEDANIB
     Indication: LUNG ADENOCARCINOMA
     Dosage: 400 MG, QD
     Route: 065
     Dates: start: 20180705, end: 20181025

REACTIONS (2)
  - Malignant neoplasm progression [Unknown]
  - Haematotoxicity [Unknown]

NARRATIVE: CASE EVENT DATE: 201810
